FAERS Safety Report 21492218 (Version 6)
Quarter: 2022Q4

REPORT INFORMATION
  Report Type: Spontaneous
  Country: FR (occurrence: FR)
  Receive Date: 20221021
  Receipt Date: 20221208
  Transmission Date: 20230112
  Serious: Yes (Other)
  Sender: FDA-Public Use
  Company Number: FR-BAYER-2022P017693

PATIENT
  Age: 52 Year
  Sex: Female

DRUGS (1)
  1. MIRENA [Suspect]
     Active Substance: LEVONORGESTREL
     Indication: Menometrorrhagia
     Dosage: 20?G/DAY
     Route: 015
     Dates: start: 2017

REACTIONS (5)
  - Device breakage [None]
  - Embedded device [Not Recovered/Not Resolved]
  - Device expulsion [Not Recovered/Not Resolved]
  - Uterine cervix stenosis [Recovered/Resolved]
  - Complication of device removal [None]

NARRATIVE: CASE EVENT DATE: 20220907
